FAERS Safety Report 25035155 (Version 1)
Quarter: 2025Q1

REPORT INFORMATION
  Report Type: Spontaneous
  Country: US (occurrence: US)
  Receive Date: 20250304
  Receipt Date: 20250304
  Transmission Date: 20250409
  Serious: Yes (Life-Threatening, Hospitalization, Other)
  Sender: RANBAXY
  Company Number: US-SUN PHARMACEUTICAL INDUSTRIES LTD-2025R1-496514

PATIENT
  Age: 27 Year
  Sex: Female

DRUGS (15)
  1. ABACAVIR\LAMIVUDINE [Suspect]
     Active Substance: ABACAVIR\LAMIVUDINE
     Indication: HIV infection
     Route: 065
  2. DOLUTEGRAVIR [Suspect]
     Active Substance: DOLUTEGRAVIR
     Indication: HIV infection
     Route: 065
  3. EMTRICITABINE\TENOFOVIR [Suspect]
     Active Substance: EMTRICITABINE\TENOFOVIR
     Indication: HIV infection
     Route: 065
  4. FENTANYL [Suspect]
     Active Substance: FENTANYL
     Indication: Abdominal pain upper
     Route: 042
  5. MAGNESIUM SULFATE [Suspect]
     Active Substance: MAGNESIUM SULFATE
     Indication: Maternal therapy to enhance foetal lung maturity
     Route: 065
  6. TACROLIMUS [Interacting]
     Active Substance: TACROLIMUS
     Indication: Prophylaxis
     Dosage: 0.1 MILLIGRAM/KILOGRAM, TID
     Route: 065
  7. NICARDIPINE [Suspect]
     Active Substance: NICARDIPINE
     Indication: Hypertension
     Route: 065
  8. LABETALOL [Suspect]
     Active Substance: LABETALOL
     Indication: Hypertension
     Route: 065
  9. BETAMETHASONE [Suspect]
     Active Substance: BETAMETHASONE
     Indication: Maternal therapy to enhance foetal lung maturity
     Route: 065
  10. AZATHIOPRINE [Suspect]
     Active Substance: AZATHIOPRINE
     Indication: Prophylaxis
     Route: 065
  11. BICTEGRAVIR [Suspect]
     Active Substance: BICTEGRAVIR
     Indication: HIV infection
     Route: 065
  12. DARUNAVIR [Suspect]
     Active Substance: DARUNAVIR
     Indication: HIV infection
     Route: 065
  13. RIFAMPIN [Suspect]
     Active Substance: RIFAMPIN
     Indication: Prophylaxis
     Dosage: 600 MILLIGRAM, QD
     Route: 048
  14. RILPIVIRINE [Suspect]
     Active Substance: RILPIVIRINE
     Indication: HIV infection
     Route: 065
  15. RITONAVIR [Suspect]
     Active Substance: RITONAVIR
     Indication: HIV infection
     Dosage: 100 MILLIGRAM, BID
     Route: 065

REACTIONS (10)
  - Toxicity to various agents [Unknown]
  - Exposure during pregnancy [Unknown]
  - Drug interaction [Unknown]
  - Hypotension [Unknown]
  - Live birth [Unknown]
  - Malaise [Unknown]
  - Chest discomfort [Unknown]
  - Hypertension [Unknown]
  - Pre-eclampsia [Unknown]
  - Abdominal pain upper [Unknown]
